FAERS Safety Report 6393645-3 (Version None)
Quarter: 2009Q4

REPORT INFORMATION
  Report Type: 
  Country: None (occurrence: None)
  Receive Date: 20091008
  Receipt Date: 20090929
  Transmission Date: 20100525
  Serious: Yes (Hospitalization, Other)
  Sender: FDA-Public Use
  Company Number: CZ-JNJFOC-20091000093

PATIENT
  Age: 58 Year
  Sex: Female

DRUGS (10)
  1. HALOPERIDOL [Suspect]
     Indication: AGITATION
     Route: 048
     Dates: start: 20090415, end: 20090521
  2. ALPRAZOLAMUM [Concomitant]
     Route: 065
  3. ALPRAZOLAMUM [Concomitant]
     Route: 065
  4. HYPNOGEN [Concomitant]
     Dosage: AT THE EVNING, AT 20 O'CLOCK
     Route: 065
  5. APAURIN [Concomitant]
     Dosage: AT 19 O'CLOCK
     Route: 030
  6. EUTHROID-1 [Concomitant]
     Route: 065
  7. DEXAMETHASONE SODIUM POSPHATE [Concomitant]
     Dosage: 1/4-3 TIMES
     Route: 065
  8. NEURONTIN [Concomitant]
     Dosage: 300MG
     Route: 065
  9. CITALEC [Concomitant]
     Route: 065
  10. CITALEC [Concomitant]
     Route: 065

REACTIONS (2)
  - EXTRAPYRAMIDAL DISORDER [None]
  - THROMBOSIS [None]
